FAERS Safety Report 5758613-0 (Version None)
Quarter: 2008Q2

REPORT INFORMATION
  Report Type: 
  Country: None (occurrence: None)
  Receive Date: 20080604
  Receipt Date: 20080526
  Transmission Date: 20081010
  Serious: Yes (Life-Threatening, Other)
  Sender: FDA-Public Use
  Company Number: B0523365A

PATIENT
  Age: 72 Year
  Sex: Male

DRUGS (5)
  1. ZOFRAN [Suspect]
     Indication: VOMITING
     Dosage: 8MG SINGLE DOSE
     Route: 030
     Dates: start: 20080213, end: 20080213
  2. BLINDED TRIAL MEDICATION [Suspect]
     Indication: RECTAL CANCER METASTATIC
     Route: 048
     Dates: start: 20071010
  3. OXALIPLATIN [Suspect]
     Indication: RECTAL CANCER METASTATIC
     Route: 042
     Dates: start: 20071010
  4. FLUOROURACIL [Suspect]
     Indication: RECTAL CANCER METASTATIC
     Route: 042
     Dates: start: 20071010
  5. LEUCOVORIN CALCIUM [Suspect]
     Indication: RECTAL CANCER METASTATIC
     Route: 042
     Dates: start: 20071010

REACTIONS (3)
  - CHILLS [None]
  - DRUG HYPERSENSITIVITY [None]
  - HYPOTENSION [None]
